FAERS Safety Report 24760496 (Version 1)
Quarter: 2024Q4

REPORT INFORMATION
  Report Type: Spontaneous
  Country: US (occurrence: US)
  Receive Date: 20241220
  Receipt Date: 20241220
  Transmission Date: 20250115
  Serious: Yes (Hospitalization, Other)
  Sender: TAKEDA
  Company Number: US-TAKEDA-2024TUS126063

PATIENT
  Age: 77 Year
  Sex: Female

DRUGS (1)
  1. HYQVIA [Suspect]
     Active Substance: HUMAN IMMUNOGLOBULIN G\HYALURONIDASE (HUMAN RECOMBINANT)
     Indication: Blood immunoglobulin G decreased
     Dosage: 45 GRAM, MONTHLY
     Dates: start: 20200129

REACTIONS (3)
  - Fall [Unknown]
  - Ankle fracture [Unknown]
  - Foot fracture [Unknown]

NARRATIVE: CASE EVENT DATE: 20241213
